FAERS Safety Report 20992973 (Version 1)
Quarter: 2022Q2

REPORT INFORMATION
  Report Type: Spontaneous
  Country: US (occurrence: US)
  Receive Date: 20220622
  Receipt Date: 20220622
  Transmission Date: 20220720
  Serious: No
  Sender: FDA-Public Use
  Company Number: US-PFIZER INC-202200857096

PATIENT
  Age: 55 Year
  Sex: Female

DRUGS (3)
  1. PAXLOVID [Suspect]
     Active Substance: NIRMATRELVIR\RITONAVIR
     Indication: COVID-19 treatment
     Dosage: UNK
     Dates: start: 20220605, end: 20220609
  2. ZYRTEC [Concomitant]
     Active Substance: CETIRIZINE HYDROCHLORIDE
     Dosage: UNK
  3. VITAMIN D NOS [Concomitant]
     Active Substance: VITAMIN D NOS
     Dosage: UNK

REACTIONS (2)
  - Nasal congestion [Not Recovered/Not Resolved]
  - Cough [Not Recovered/Not Resolved]

NARRATIVE: CASE EVENT DATE: 20220615
